FAERS Safety Report 7385308-2 (Version None)
Quarter: 2011Q1

REPORT INFORMATION
  Report Type: 
  Country: None (occurrence: None)
  Receive Date: 20110330
  Receipt Date: 20100614
  Transmission Date: 20110831
  Serious: No
  Sender: FDA-Public Use
  Company Number: US-MYLANLABS-2010S1010676

PATIENT
  Age: 23 Year
  Sex: Male

DRUGS (5)
  1. XYREN [Concomitant]
     Indication: NARCOLEPSY
  2. EMSAM [Suspect]
     Route: 062
     Dates: start: 20100313, end: 20100315
  3. EMSAM [Suspect]
     Indication: DEPRESSION
     Dosage: QD
     Route: 062
     Dates: start: 20100301, end: 20100313
  4. EMSAM [Suspect]
     Route: 062
     Dates: start: 20100614, end: 20100614
  5. ACCOLATE [Concomitant]
     Indication: ASTHMA

REACTIONS (5)
  - TREMOR [None]
  - BLOOD PRESSURE FLUCTUATION [None]
  - WRONG TECHNIQUE IN DRUG USAGE PROCESS [None]
  - DRUG EFFECT INCREASED [None]
  - DIZZINESS [None]
